FAERS Safety Report 16155401 (Version 2)
Quarter: 2019Q2

REPORT INFORMATION
  Report Type: Report from Study
  Country: None (occurrence: US)
  Receive Date: 20190403
  Receipt Date: 20190607
  Transmission Date: 20190711
  Serious: Yes (Death, Hospitalization)
  Sender: FDA-Public Use
  Company Number: US-ABBVIE-19K-163-2724336-00

PATIENT
  Age: 67 Year
  Sex: Male
  Weight: 72.1 kg

DRUGS (4)
  1. DEXAMETHASONE. [Concomitant]
     Active Substance: DEXAMETHASONE
     Indication: PRODUCT USED FOR UNKNOWN INDICATION
  2. CARFILZOMIB [Concomitant]
     Active Substance: CARFILZOMIB
     Indication: PRODUCT USED FOR UNKNOWN INDICATION
  3. VENCLEXTA [Suspect]
     Active Substance: VENETOCLAX
     Indication: PLASMA CELL MYELOMA
     Dosage: 8 PILLS PER DAY
     Route: 048
     Dates: start: 20190325
  4. VENCLEXTA [Suspect]
     Active Substance: VENETOCLAX
     Indication: ACUTE MYELOID LEUKAEMIA

REACTIONS (4)
  - Intentional product use issue [Unknown]
  - Death [Fatal]
  - Pneumonia [Recovered/Resolved]
  - Metabolic function test [Unknown]

NARRATIVE: CASE EVENT DATE: 20190325
